FAERS Safety Report 10429783 (Version 1)
Quarter: 2014Q3

REPORT INFORMATION
  Report Type: Spontaneous
  Country: US (occurrence: None)
  Receive Date: 20140811
  Receipt Date: 20140811
  Transmission Date: 20150326
  Serious: Yes (Other)
  Sender: FDA-Public Use
  Company Number: 201405037

PATIENT
  Age: 49 Year
  Sex: Male
  Weight: 86.18 kg

DRUGS (3)
  1. EDEX [Suspect]
     Active Substance: ALPROSTADIL
     Indication: ERECTILE DYSFUNCTION
     Route: 011
     Dates: start: 20140505, end: 20140505
  2. CLONAZEPAM. [Concomitant]
     Active Substance: CLONAZEPAM
  3. PANTOPRAZOLE [Concomitant]
     Active Substance: PANTOPRAZOLE SODIUM

REACTIONS (2)
  - Priapism [None]
  - Painful erection [None]

NARRATIVE: CASE EVENT DATE: 20140505
